FAERS Safety Report 8193153-3 (Version None)
Quarter: 2012Q1

REPORT INFORMATION
  Report Type: 
  Country: None (occurrence: None)
  Receive Date: 20120308
  Receipt Date: 20120227
  Transmission Date: 20120608
  Serious: Yes (Other)
  Sender: FDA-Public Use
  Company Number: DE-CELGENEUS-062-C5013-12022913

PATIENT
  Age: 77 Year
  Sex: Female

DRUGS (3)
  1. THALIDOMIDE [Suspect]
     Indication: MULTIPLE MYELOMA
     Route: 048
  2. PREDNISONE TAB [Suspect]
     Indication: MULTIPLE MYELOMA
     Route: 065
  3. MELPHALAN HYDROCHLORIDE [Suspect]
     Indication: MULTIPLE MYELOMA
     Route: 065

REACTIONS (1)
  - ACUTE MYELOID LEUKAEMIA [None]
